FAERS Safety Report 14615137 (Version 2)
Quarter: 2018Q2

REPORT INFORMATION
  Report Type: Spontaneous
  Country: US (occurrence: US)
  Receive Date: 20180308
  Receipt Date: 20180507
  Transmission Date: 20180711
  Serious: No
  Sender: FDA-Public Use
  Company Number: US-PFIZER INC-2018091392

PATIENT
  Sex: Female

DRUGS (1)
  1. ADVIL [Suspect]
     Active Substance: IBUPROFEN
     Indication: INFLAMMATION
     Dosage: UNK

REACTIONS (8)
  - Nausea [Unknown]
  - Malaise [Unknown]
  - Foreign body sensation in eyes [Unknown]
  - Vertigo [Unknown]
  - Eye irritation [Unknown]
  - Eye pain [Unknown]
  - Abdominal discomfort [Unknown]
  - Visual impairment [Unknown]

NARRATIVE: CASE EVENT DATE: 20180301
